FAERS Safety Report 6470352-X (Version None)
Quarter: 2009Q4

REPORT INFORMATION
  Report Type: 
  Country: None (occurrence: None)
  Receive Date: 20091203
  Receipt Date: 20091125
  Transmission Date: 20100525
  Serious: Yes (Hospitalization)
  Sender: FDA-Public Use
  Company Number: GXKR2009TR12339

PATIENT
  Age: 28 Year
  Sex: Female
  Weight: 164 kg

DRUGS (10)
  1. QUETIAPINE (NGX) [Suspect]
     Indication: SCHIZOPHRENIA
     Dosage: 900 MG, QD
     Route: 065
  2. OLANZAPINE [Suspect]
     Indication: SCHIZOPHRENIA
     Dosage: 20 MG, QD
     Route: 065
  3. VALPROIC ACID (NGX) [Suspect]
     Dosage: 1000 MG, QD
     Route: 065
  4. LITHIUM [Suspect]
     Dosage: 1200 MG, QD
     Route: 065
  5. ZIPRASIDONE HCL [Concomitant]
     Dosage: 20 MG, QD
     Route: 030
  6. ZIPRASIDONE HCL [Concomitant]
     Dosage: INCREASED IN STAGES BY DAY 10 TO 240 MG, QD
     Route: 048
  7. HALOPERIDOL [Concomitant]
     Dosage: 15 MG, QD
     Route: 065
  8. BIPERIDEN HYDROCHLORIDE TAB [Concomitant]
     Dosage: 2 MG, QD
     Route: 065
  9. TOPIRAMATE [Concomitant]
     Dosage: 100 MG, QD
     Route: 065
  10. TOPIRAMATE [Concomitant]
     Dosage: 200 MG, UNK
     Route: 065

REACTIONS (5)
  - HYPERCHOLESTEROLAEMIA [None]
  - HYPERTENSION [None]
  - METABOLIC SYNDROME [None]
  - TYPE 2 DIABETES MELLITUS [None]
  - WEIGHT INCREASED [None]
